FAERS Safety Report 9305235 (Version 10)
Quarter: 2016Q4

REPORT INFORMATION
  Report Type: Report from Study
  Country: NO (occurrence: NO)
  Receive Date: 20130523
  Receipt Date: 20161205
  Transmission Date: 20170207
  Serious: Yes (Life-Threatening, Hospitalization)
  Sender: FDA-Public Use
  Company Number: NO-JNJFOC-20130508281

PATIENT
  Age: 66 Year
  Sex: Male
  Weight: 59 kg

DRUGS (12)
  1. REMICADE [Suspect]
     Active Substance: INFLIXIMAB
     Indication: COLITIS ULCERATIVE
     Route: 042
     Dates: start: 20110225
  2. MESASAL [Concomitant]
     Indication: PROCTITIS
     Dosage: FREQUENCY ^1X2^
     Route: 054
     Dates: start: 20110608
  3. REMICADE [Suspect]
     Active Substance: INFLIXIMAB
     Indication: COLITIS ULCERATIVE
     Route: 042
     Dates: start: 20110429, end: 20110429
  4. REMICADE [Suspect]
     Active Substance: INFLIXIMAB
     Indication: COLITIS ULCERATIVE
     Dosage: UNSPECIFIED DOSE AT WEEK 0, 2 AND 6 AND SUBSEQUENTLY ONCE EVERY 8 WEEKS
     Route: 042
     Dates: start: 20101220
  5. REMICADE [Suspect]
     Active Substance: INFLIXIMAB
     Indication: COLITIS ULCERATIVE
     Route: 042
     Dates: start: 20110128
  6. ZYRTEC [Concomitant]
     Active Substance: CETIRIZINE HYDROCHLORIDE
     Indication: PRURITUS
     Dosage: 1X1
     Route: 065
     Dates: start: 20110501
  7. NEXIUM [Concomitant]
     Active Substance: ESOMEPRAZOLE MAGNESIUM
     Indication: GASTROOESOPHAGEAL REFLUX DISEASE
     Dosage: FREQUENCY ^1X2^
     Route: 048
     Dates: start: 20100101
  8. CALCIGRAN FORTE [Concomitant]
     Indication: OSTEOPOROSIS
     Dosage: 400/500 MG/E FREQUENCY ^1X2^
     Route: 048
     Dates: start: 20120201
  9. LOPERAMIDE [Suspect]
     Active Substance: LOPERAMIDE
     Indication: PRODUCT USED FOR UNKNOWN INDICATION
     Route: 065
  10. ZYRTEC [Concomitant]
     Active Substance: CETIRIZINE HYDROCHLORIDE
     Indication: HYPERSENSITIVITY
     Dosage: 1X1
     Route: 065
     Dates: start: 20110501
  11. AFI-D2-FORTE [Concomitant]
     Route: 065
  12. CALCIGRAN FORTE [Concomitant]
     Indication: BLOOD CALCIUM
     Dosage: 400/500 MG/E FREQUENCY ^1X2^
     Route: 048
     Dates: start: 20120201

REACTIONS (4)
  - Drug ineffective [Unknown]
  - Cytomegalovirus infection [Recovered/Resolved]
  - Subileus [Recovered/Resolved]
  - Therapy non-responder [Unknown]

NARRATIVE: CASE EVENT DATE: 20110617
